FAERS Safety Report 4500362-0 (Version None)
Quarter: 2004Q4

REPORT INFORMATION
  Report Type: 
  Country: None (occurrence: None)
  Receive Date: 20041109
  Receipt Date: 20041026
  Transmission Date: 20050328
  Serious: Yes (Hospitalization, Other)
  Sender: FDA-Public Use
  Company Number: USA041080993

PATIENT
  Age: 58 Year
  Sex: Female
  Weight: 82 kg

DRUGS (2)
  1. ZYPREXA [Suspect]
     Indication: MANIA
     Dosage: 20 MG/1 AT BEDTIME
     Dates: start: 20030801, end: 20040801
  2. PROZAC [Suspect]
     Dosage: 60 MG/1 DAY

REACTIONS (9)
  - DEPRESSION [None]
  - DIZZINESS [None]
  - DROOLING [None]
  - DRY MOUTH [None]
  - HEAD INJURY [None]
  - ROAD TRAFFIC ACCIDENT [None]
  - SUICIDAL IDEATION [None]
  - WEIGHT DECREASED [None]
  - WEIGHT INCREASED [None]
